FAERS Safety Report 14768302 (Version 4)
Quarter: 2018Q4

REPORT INFORMATION
  Report Type: Report from Study
  Country: AU (occurrence: AU)
  Receive Date: 20180417
  Receipt Date: 20181017
  Transmission Date: 20190204
  Serious: Yes (Hospitalization)
  Sender: FDA-Public Use
  Company Number: AU-ROCHE-2034691

PATIENT
  Age: 77 Year
  Sex: Female
  Weight: 57.5 kg

DRUGS (40)
  1. NOVORAPID [Concomitant]
     Active Substance: INSULIN ASPART
     Route: 058
     Dates: start: 20171206, end: 20171213
  2. ATEZOLIZUMAB. [Suspect]
     Active Substance: ATEZOLIZUMAB
     Indication: TRIPLE NEGATIVE BREAST CANCER
     Dosage: DATE OF MOST RECENT DOSE PRIOR TO DIARRHEA, STEROID INDUCED HYPOMANIA, BOWEL OBSTRUCTION AND STEROID
     Route: 042
     Dates: start: 20170829
  3. PANTOPRAZOLE [Concomitant]
     Active Substance: PANTOPRAZOLE
     Indication: INTESTINAL OBSTRUCTION
     Dosage: PROPHYLAXIS FOR STEROID INDUCED GASTRIC REFLUX
     Route: 048
     Dates: start: 20171215, end: 20180102
  4. NOVORAPID [Concomitant]
     Active Substance: INSULIN ASPART
     Indication: DIABETES MELLITUS
     Route: 058
     Dates: start: 20171205, end: 20171215
  5. PREDNISOLONE. [Suspect]
     Active Substance: PREDNISOLONE
     Route: 048
     Dates: start: 20171205, end: 20171207
  6. PREDNISOLONE. [Suspect]
     Active Substance: PREDNISOLONE
     Route: 048
     Dates: start: 20171208, end: 20171212
  7. PREDNISOLONE. [Suspect]
     Active Substance: PREDNISOLONE
     Route: 048
     Dates: start: 20171215
  8. VITAMIN C [Concomitant]
     Active Substance: ASCORBIC ACID
     Route: 048
     Dates: start: 201704
  9. CLONIDINE. [Concomitant]
     Active Substance: CLONIDINE
     Indication: INTESTINAL OBSTRUCTION
     Route: 048
     Dates: start: 20171204, end: 20171204
  10. PANTOPRAZOLE [Concomitant]
     Active Substance: PANTOPRAZOLE
     Dosage: OTHER
     Route: 042
     Dates: start: 20180103, end: 20180103
  11. RUCAPARIB [Suspect]
     Active Substance: RUCAPARIB
     Indication: TRIPLE NEGATIVE BREAST CANCER
     Dosage: MOST RECENT DOSE (600 MG) PRIOR TO DIARRHEA, STEROID INDUCED HYPOMANIA AND STEROID INDUCED DELIRIUM:
     Route: 048
     Dates: start: 20170829
  12. PREDNISOLONE. [Suspect]
     Active Substance: PREDNISOLONE
     Indication: DIARRHOEA
     Route: 048
     Dates: start: 20171115, end: 20171129
  13. PREMARIN [Concomitant]
     Active Substance: ESTROGENS, CONJUGATED
     Indication: HORMONE REPLACEMENT THERAPY
     Route: 048
     Dates: start: 2012, end: 20180102
  14. ACIMAX [Concomitant]
     Active Substance: OMEPRAZOLE
     Indication: GASTROOESOPHAGEAL REFLUX DISEASE
     Route: 048
     Dates: start: 2007
  15. DIPROSONE CREAM [Concomitant]
     Indication: DRY SKIN
     Dosage: 1 OTHER
     Route: 061
     Dates: start: 201704
  16. AMLODIPINE [Concomitant]
     Active Substance: AMLODIPINE BESYLATE
     Route: 048
     Dates: start: 20180112, end: 20180112
  17. BACTRIM [Concomitant]
     Active Substance: SULFAMETHOXAZOLE\TRIMETHOPRIM
     Dosage: PROPHYLAXIS FOR STEROID INDUCED PNEUMONIA
     Route: 048
     Dates: start: 20171201
  18. GTN [Concomitant]
     Active Substance: NITROGLYCERIN
     Route: 050
     Dates: start: 20180107, end: 20180108
  19. ESOMEPRAZOLE. [Concomitant]
     Active Substance: ESOMEPRAZOLE MAGNESIUM
     Indication: PROPHYLAXIS
     Route: 048
     Dates: start: 20171204, end: 20171214
  20. VITAMIN D3 [Concomitant]
     Active Substance: CHOLECALCIFEROL
     Route: 048
     Dates: start: 2016
  21. VITAMIN D3 [Concomitant]
     Active Substance: CHOLECALCIFEROL
     Dosage: 1000 UNIT
     Route: 048
     Dates: start: 20180108
  22. ENOXAPARIN [Concomitant]
     Active Substance: ENOXAPARIN
     Indication: THROMBOSIS PROPHYLAXIS
     Route: 058
     Dates: start: 20171130, end: 20171201
  23. ENOXAPARIN [Concomitant]
     Active Substance: ENOXAPARIN
     Route: 058
     Dates: start: 20180102, end: 20180102
  24. ENOXAPARIN [Concomitant]
     Active Substance: ENOXAPARIN
     Route: 058
     Dates: start: 20180109, end: 20180110
  25. PREDNISOLONE. [Suspect]
     Active Substance: PREDNISOLONE
     Route: 048
     Dates: start: 20171130, end: 20171204
  26. KRILL OIL [Concomitant]
     Active Substance: DIETARY SUPPLEMENT
     Dosage: FOR BONE AND JOINT HEALTH
     Route: 048
     Dates: start: 2010
  27. VITAMIN D3 [Concomitant]
     Active Substance: CHOLECALCIFEROL
     Dosage: 1000 UNIT
     Route: 048
     Dates: start: 20180103, end: 20180103
  28. AMLODIPINE [Concomitant]
     Active Substance: AMLODIPINE BESYLATE
     Indication: HYPERTENSION
     Route: 048
     Dates: start: 20171130
  29. CLONIDINE. [Concomitant]
     Active Substance: CLONIDINE
     Indication: HYPERTENSION
     Route: 048
     Dates: start: 20171130, end: 20171203
  30. PANADOL [Concomitant]
     Active Substance: ACETAMINOPHEN
     Indication: ABDOMINAL PAIN
     Route: 048
     Dates: start: 20171026
  31. GTN [Concomitant]
     Active Substance: NITROGLYCERIN
     Indication: HYPERTENSION
     Route: 061
     Dates: start: 20171130, end: 20171130
  32. ATACAND [Concomitant]
     Active Substance: CANDESARTAN CILEXETIL
     Indication: HYPERTENSION
     Route: 048
     Dates: start: 2015, end: 20171227
  33. ATACAND [Concomitant]
     Active Substance: CANDESARTAN CILEXETIL
     Route: 048
     Dates: start: 20180108
  34. AMLODIPINE [Concomitant]
     Active Substance: AMLODIPINE BESYLATE
     Route: 048
     Dates: start: 20180113
  35. PANTOPRAZOLE [Concomitant]
     Active Substance: PANTOPRAZOLE
     Route: 042
     Dates: start: 20180104
  36. ATACAND [Concomitant]
     Active Substance: CANDESARTAN CILEXETIL
     Route: 048
     Dates: start: 20171128
  37. PARACETAMOL [Concomitant]
     Active Substance: ACETAMINOPHEN
     Indication: ABDOMINAL PAIN
     Route: 048
  38. CLONIDINE. [Concomitant]
     Active Substance: CLONIDINE
     Route: 048
     Dates: start: 20180114, end: 20180114
  39. CLEXANE [Concomitant]
     Active Substance: ENOXAPARIN SODIUM
     Indication: THROMBOSIS PROPHYLAXIS
     Route: 058
     Dates: start: 20171208, end: 20171215
  40. PANTOPRAZOLE [Concomitant]
     Active Substance: PANTOPRAZOLE
     Dosage: PROPHYLAXIS FOR STEROID INDUCED GASTRIC REFLUX
     Route: 048
     Dates: start: 20171130, end: 20171203

REACTIONS (4)
  - Intestinal obstruction [Not Recovered/Not Resolved]
  - Hypomania [Recovered/Resolved]
  - Delirium [Recovered/Resolved]
  - Diarrhoea [Recovered/Resolved]

NARRATIVE: CASE EVENT DATE: 20171108
